FAERS Safety Report 4518484-7 (Version None)
Quarter: 2004Q4

REPORT INFORMATION
  Report Type: 
  Country: None (occurrence: None)
  Receive Date: 20041203
  Receipt Date: 20041008
  Transmission Date: 20050328
  Serious: Yes (Life-Threatening, Hospitalization, Disabling)
  Sender: FDA-Public Use
  Company Number: US-MERCK-0410USA01378

PATIENT
  Sex: Female

DRUGS (5)
  1. VIOXX [Suspect]
     Indication: ARTHRITIS
     Route: 048
     Dates: start: 20020101, end: 20020101
  2. ASPIRIN [Concomitant]
     Route: 065
  3. LOPID [Concomitant]
     Route: 065
  4. QUININE [Concomitant]
     Route: 065
  5. ETHYL SALICYLATE [Concomitant]
     Route: 065

REACTIONS (8)
  - BREAST MICROCALCIFICATION [None]
  - CARDIAC FAILURE CONGESTIVE [None]
  - DUODENITIS [None]
  - GASTRITIS [None]
  - GASTROOESOPHAGEAL REFLUX DISEASE [None]
  - ULCER [None]
  - VOMITING [None]
  - WEIGHT DECREASED [None]
